FAERS Safety Report 4764389-6 (Version None)
Quarter: 2005Q3

REPORT INFORMATION
  Report Type: 
  Country: None (occurrence: None)
  Receive Date: 20050906
  Receipt Date: 20050721
  Transmission Date: 20060218
  Serious: No
  Sender: FDA-Public Use
  Company Number: RENA-11491

PATIENT
  Age: 59 Year
  Sex: Male
  Weight: 78 kg

DRUGS (9)
  1. RENAGEL [Suspect]
     Indication: HYPERPHOSPHATAEMIA
     Dosage: UNK
     Route: 065
  2. HECTOROL [Suspect]
     Indication: HYPERPARATHYROIDISM SECONDARY
     Dosage: 4 MCG 3X/W IV
     Route: 042
  3. NEPHROVIT [Concomitant]
  4. LASIX [Concomitant]
  5. KLONOPIN [Concomitant]
  6. PHOSLO [Concomitant]
  7. COZAAR [Concomitant]
  8. HYTRIN [Concomitant]
  9. EPOGEN [Concomitant]

REACTIONS (1)
  - ANAPHYLACTOID REACTION [None]
